FAERS Safety Report 8364789-1 (Version None)
Quarter: 2012Q2

REPORT INFORMATION
  Report Type: 
  Country: None (occurrence: None)
  Receive Date: 20120516
  Receipt Date: 20120510
  Transmission Date: 20120825
  Serious: Yes (Hospitalization)
  Sender: FDA-Public Use
  Company Number: AU-ROCHE-1068050

PATIENT
  Age: 73 Year
  Sex: Male
  Weight: 86.7 kg

DRUGS (1)
  1. ZELBORAF [Suspect]
     Indication: MALIGNANT MELANOMA
     Dosage: DATE OF LAST DOSE PRIOR TO EVENT IS ON 29/APR/2012
     Route: 048
     Dates: start: 20120312

REACTIONS (1)
  - HYPOTENSION [None]
